FAERS Safety Report 25956280 (Version 1)
Quarter: 2025Q4

REPORT INFORMATION
  Report Type: Spontaneous
  Country: US (occurrence: US)
  Receive Date: 20251024
  Receipt Date: 20251024
  Transmission Date: 20260117
  Serious: No
  Sender: GILEAD
  Company Number: US-GILEAD-2025-0732810

PATIENT

DRUGS (2)
  1. YEZTUGO [Suspect]
     Active Substance: LENACAPAVIR SODIUM
     Indication: Product used for unknown indication
     Dosage: UNK (INJECTION)
     Route: 065
     Dates: start: 202508
  2. YEZTUGO [Suspect]
     Active Substance: LENACAPAVIR SODIUM
     Indication: Product used for unknown indication
     Dosage: UNK (TABLET)
     Route: 065

REACTIONS (2)
  - Injection site mass [Not Recovered/Not Resolved]
  - Injection site pain [Recovered/Resolved]

NARRATIVE: CASE EVENT DATE: 20250801
